FAERS Safety Report 20679801 (Version 1)
Quarter: 2022Q2

REPORT INFORMATION
  Report Type: Spontaneous
  Country: US (occurrence: None)
  Receive Date: 20220405
  Receipt Date: 20220405
  Transmission Date: 20220721
  Serious: Yes (Disabling, Other)
  Sender: FDA-Public Use
  Company Number: None

PATIENT

DRUGS (2)
  1. PARAGARD T 380A [Suspect]
     Active Substance: COPPER
     Indication: Intrauterine contraception
     Route: 067
     Dates: start: 20210317
  2. TRIAMCINOLONE [Suspect]
     Active Substance: TRIAMCINOLONE
     Indication: Dry skin
     Dosage: FREQUENCY : 4 TIMES A DAY;?OTHER ROUTE : APPLIED TO A SURFACE USUALLY SKIN;?
     Route: 050

REACTIONS (7)
  - Rash [None]
  - Pruritus [None]
  - Burning sensation [None]
  - Pain [None]
  - Discomfort [None]
  - Haemorrhage [None]
  - Anaemia [None]

NARRATIVE: CASE EVENT DATE: 20211101
